FAERS Safety Report 7694060-2 (Version None)
Quarter: 2011Q3

REPORT INFORMATION
  Report Type: 
  Country: None (occurrence: None)
  Receive Date: 20110819
  Receipt Date: 20110816
  Transmission Date: 20111222
  Serious: Yes (Death)
  Sender: FDA-Public Use
  Company Number: DE-ABBOTT-11P-062-0847601-00

PATIENT
  Sex: Female

DRUGS (6)
  1. METHOTREXATE [Concomitant]
     Dates: start: 20040826
  2. METHOTREXATE [Concomitant]
     Dates: start: 20060830
  3. METHOTREXATE [Concomitant]
     Dates: start: 20070814
  4. HUMIRA [Suspect]
     Indication: RHEUMATOID ARTHRITIS
     Dates: start: 20040201
  5. METHOTREXATE [Concomitant]
     Dates: start: 20090218
  6. METHOTREXATE [Concomitant]
     Indication: PRODUCT USED FOR UNKNOWN INDICATION
     Dates: start: 20040129

REACTIONS (1)
  - DEATH [None]
